FAERS Safety Report 10549080 (Version 1)
Quarter: 2014Q4

REPORT INFORMATION
  Report Type: Spontaneous
  Country: US (occurrence: None)
  Receive Date: 20141015
  Receipt Date: 20141015
  Transmission Date: 20150529
  Serious: No
  Sender: FDA-Public Use
  Company Number: 2014US003454

PATIENT
  Age: 76 Year
  Sex: Female

DRUGS (7)
  1. FLECAINIDE ACETATE. [Concomitant]
     Active Substance: FLECAINIDE ACETATE
  2. MAREZINE (CYCLIZINE LACTATE) [Concomitant]
  3. FUROSEMIDE (FUROSEMIDE SODIUM) [Concomitant]
  4. TOPROL (METOPROLOL SUCCINATE) [Concomitant]
  5. ICLUSIG [Suspect]
     Active Substance: PONATINIB
     Indication: CHRONIC MYELOID LEUKAEMIA
     Route: 048
     Dates: end: 2014
  6. TOPICORT (DESOXIMETASONE) [Concomitant]
  7. LIPITOR [Concomitant]
     Active Substance: ATORVASTATIN CALCIUM

REACTIONS (3)
  - White blood cell count decreased [None]
  - Red blood cell count decreased [None]
  - Platelet count decreased [None]
